FAERS Safety Report 16340284 (Version 2)
Quarter: 2019Q3

REPORT INFORMATION
  Report Type: Spontaneous
  Country: FR (occurrence: FR)
  Receive Date: 20190522
  Receipt Date: 20190821
  Transmission Date: 20191004
  Serious: Yes (Hospitalization)
  Sender: FDA-Public Use
  Company Number: FR-TEVA-2019-FR-1051740

PATIENT
  Age: 48 Year
  Sex: Female
  Weight: 56 kg

DRUGS (10)
  1. PACLITAXEL. [Suspect]
     Active Substance: PACLITAXEL
     Indication: OVARIAN CANCER
     Dosage: 276 MILLIGRAM DAILY;
     Route: 042
     Dates: start: 20190409, end: 20190409
  2. EMEND [Concomitant]
     Active Substance: APREPITANT
     Indication: PREMEDICATION
     Dosage: 80 MILLIGRAM DAILY;
     Route: 048
     Dates: start: 20190410, end: 20190411
  3. METHYLPREDNISOLONE MYLAN [Suspect]
     Active Substance: METHYLPREDNISOLONE
     Indication: PREMEDICATION
     Dosage: 100 MILLIGRAM DAILY;
     Route: 042
     Dates: start: 20190409, end: 20190409
  4. EMEND [Concomitant]
     Active Substance: APREPITANT
     Dosage: 125 MILLIGRAM DAILY;
     Route: 048
     Dates: start: 20190409, end: 20190409
  5. ONDANSETRON [Suspect]
     Active Substance: ONDANSETRON
     Indication: PREMEDICATION
     Dosage: 1 DOSAGE FORMS DAILY;
     Route: 042
     Dates: start: 20190409, end: 20190409
  6. EMEND [Suspect]
     Active Substance: APREPITANT
     Indication: PREMEDICATION
     Dosage: 125 MILLIGRAM DAILY;
     Route: 048
     Dates: start: 20190409, end: 20190409
  7. CARBOPLATINE ACCORD [Suspect]
     Active Substance: CARBOPLATIN
     Indication: OVARIAN CANCER
     Route: 065
     Dates: start: 20190409, end: 20190409
  8. EMEND [Suspect]
     Active Substance: APREPITANT
     Dosage: 125 MILLIGRAM DAILY;
     Route: 048
     Dates: start: 20190409, end: 20190409
  9. AZANTAC INJECTABLE 50 MG/2 ML, SOLUTION INJECTABLE EN AMPOULE [Suspect]
     Active Substance: RANITIDINE HYDROCHLORIDE
     Indication: PREMEDICATION
     Dosage: 1 DOSAGE FORMS DAILY; AZANTAC INJECTABLE 50 MG/2 ML, SOLUTION INJECTABLE EN AMPOULE
     Route: 042
     Dates: start: 20190409, end: 20190409
  10. POLARAMINE [Suspect]
     Active Substance: DEXCHLORPHENIRAMINE MALEATE
     Indication: PREMEDICATION
     Dosage: 1 DOSAGE FORMS DAILY;
     Route: 042
     Dates: start: 20190409, end: 20190409

REACTIONS (3)
  - Coma [Recovered/Resolved]
  - Seizure [Recovered/Resolved]
  - Hypersensitivity [Recovered/Resolved]

NARRATIVE: CASE EVENT DATE: 20190409
